FAERS Safety Report 11838405 (Version 1)
Quarter: 2015Q4

REPORT INFORMATION
  Report Type: Spontaneous
  Country: US (occurrence: US)
  Receive Date: 20151215
  Receipt Date: 20151215
  Transmission Date: 20160305
  Serious: Yes (Other)
  Sender: FDA-Public Use
  Company Number: US-BAYER-2015-484418

PATIENT
  Age: 64 Year
  Sex: Male

DRUGS (2)
  1. ALEVE COLD + SINUS [Suspect]
     Active Substance: NAPROXEN SODIUM\PSEUDOEPHEDRINE HYDROCHLORIDE
     Route: 048
  2. AFRIN ORIGINAL [Suspect]
     Active Substance: OXYMETAZOLINE HYDROCHLORIDE
     Dosage: UNK
     Route: 055
     Dates: start: 1967

REACTIONS (5)
  - Product use issue [None]
  - Drug dependence [None]
  - Sinus disorder [None]
  - Therapeutic response unexpected [None]
  - Feeling abnormal [None]
